FAERS Safety Report 4524886-5 (Version None)
Quarter: 2004Q4

REPORT INFORMATION
  Report Type: 
  Country: None (occurrence: None)
  Receive Date: 20041117
  Receipt Date: 20040224
  Transmission Date: 20050328
  Serious: Yes (Other)
  Sender: FDA-Public Use
  Company Number: 2004S1000548

PATIENT
  Age: 47 Year
  Sex: Female

DRUGS (7)
  1. CLOZAPINE [Suspect]
     Indication: SCHIZOPHRENIA
     Dosage: 50MG BID, THEN ORAL
     Route: 048
  2. CLOZAPINE [Suspect]
     Indication: PSYCHOTIC DISORDER
     Dosage: 200 MG BID THEN ORAL
     Route: 048
  3. ESCITALOPRAM OXALATE [Concomitant]
  4. LEVETIRAETAM [Concomitant]
  5. SIMVASTATIN [Concomitant]
  6. ORLISTAT [Concomitant]
  7. LEVOTHYROXINE SODIUM [Concomitant]

REACTIONS (1)
  - LEUKOPENIA [None]
